FAERS Safety Report 24226717 (Version 2)
Quarter: 2024Q3

REPORT INFORMATION
  Report Type: Spontaneous
  Country: DE (occurrence: DE)
  Receive Date: 20240820
  Receipt Date: 20240913
  Transmission Date: 20241017
  Serious: Yes (Life-Threatening, Hospitalization, Other)
  Sender: AUROBINDO
  Company Number: DE-BAYER-2020-019433

PATIENT
  Age: 77 Year
  Sex: Male

DRUGS (23)
  1. ASPIRIN [Interacting]
     Active Substance: ASPIRIN
     Indication: Thrombosis prophylaxis
     Dosage: 100 MILLIGRAM, ONCE A DAY (1-0-0-0)
     Route: 065
  2. AMLODIPINE [Interacting]
     Active Substance: AMLODIPINE BESYLATE
     Indication: Hypertension
     Dosage: 5 MILLIGRAM, ONCE A DAY, 1-0-0-0
     Route: 048
  3. NALOXONE HYDROCHLORIDE\OXYCODONE HYDROCHLORIDE [Interacting]
     Active Substance: NALOXONE HYDROCHLORIDE\OXYCODONE HYDROCHLORIDE
     Indication: Pain
     Dosage: UNK, OXYCODONE: 10 MG; NALOXONE: 5 MG 1-0-1
     Route: 048
  4. PIRFENIDONE [Suspect]
     Active Substance: PIRFENIDONE
     Indication: Idiopathic pulmonary fibrosis
     Dosage: UNK
     Route: 065
  5. ASPIRIN [Interacting]
     Active Substance: ASPIRIN
     Indication: Thrombosis prophylaxis
     Dosage: 100 MILLIGRAM, ONCE A DAY
     Route: 065
  6. CLINDAMYCIN [Interacting]
     Active Substance: CLINDAMYCIN
     Indication: Gangrene
     Dosage: 600 MILLIGRAM, 3 TIMES A DAY,1-1-1 (1800 MG, ONCE A DAY)
     Route: 048
  7. CLINDAMYCIN [Interacting]
     Active Substance: CLINDAMYCIN
     Indication: Wound infection staphylococcal
  8. DIPYRONE [Interacting]
     Active Substance: DIPYRONE
     Indication: Product used for unknown indication
     Dosage: 500 MILLIGRAM, FOUR TIMES/DAY,2-2-2-2
     Route: 048
  9. METAMIZOLE [Interacting]
     Active Substance: METAMIZOLE
     Indication: Pain
     Dosage: 500 MILLIGRAM, ONCE A DAY,: 2-2-2-2
     Route: 048
  10. METAMIZOLE [Interacting]
     Active Substance: METAMIZOLE
     Dosage: 2000 MILLIGRAM, EVERY OTHER DAY, 2-2-2-2
     Route: 065
  11. PHENPROCOUMON [Interacting]
     Active Substance: PHENPROCOUMON
     Indication: Thrombosis prophylaxis
     Dosage: 3 MILLIGRAM, EVERY WEEK, (7 TABLETS OF 3 MG)
     Route: 048
  12. ATORVASTATIN [Concomitant]
     Active Substance: ATORVASTATIN
     Indication: Hyperlipidaemia
     Dosage: 40 MILLIGRAM, ONCE A DAY, 0-0-1-0
     Route: 048
  13. DOXAZOSIN [Concomitant]
     Active Substance: DOXAZOSIN MESYLATE
     Indication: Hypertension
     Dosage: 4 MILLIGRAM, TWO TIMES A DAY (1-0-1-0)
     Route: 048
  14. GLYCOPYRRONIUM\INDACATEROL [Concomitant]
     Active Substance: GLYCOPYRRONIUM\INDACATEROL
     Indication: Chronic obstructive pulmonary disease
     Dosage: UNK (1-0-1)
     Route: 050
  15. INHALERIN [Concomitant]
     Indication: Product used for unknown indication
     Dosage: UNK
     Route: 065
  16. METOPROLOL [Concomitant]
     Active Substance: METOPROLOL
     Indication: Hypertension
     Dosage: 47.5 MILLIGRAM, TWO TIMES A DAY, 1-0-1-0
     Route: 048
  17. METFORMIN [Concomitant]
     Active Substance: METFORMIN HYDROCHLORIDE
     Indication: Type 2 diabetes mellitus
     Dosage: 1000 MILLIGRAM, TWO TIMES A DAY, 1-0-1-0
     Route: 048
  18. NALOXONE HYDROCHLORIDE\OXYCODONE HYDROCHLORIDE [Concomitant]
     Active Substance: NALOXONE HYDROCHLORIDE\OXYCODONE HYDROCHLORIDE
     Indication: Pain
     Dosage: UNK
     Route: 065
  19. OXYCODONE [Concomitant]
     Active Substance: OXYCODONE
     Indication: Product used for unknown indication
     Dosage: UNK
     Route: 065
  20. PREGABALIN [Concomitant]
     Active Substance: PREGABALIN
     Indication: Product used for unknown indication
     Dosage: 50 MILLIGRAM, TWO TIMES A DAY, 1-0-1-0
     Route: 048
  21. RAMIPRIL [Concomitant]
     Active Substance: RAMIPRIL
     Indication: Hypertension
     Dosage: 5 MILLIGRAM, ONCE A DAY, 1-0-0-0
     Route: 048
  22. SITAGLIPTIN [Concomitant]
     Active Substance: SITAGLIPTIN
     Indication: Type 2 diabetes mellitus
     Dosage: 100 MILLIGRAM, ONCE A DAY, 1-0-0-0
     Route: 048
  23. ALBUTEROL SULFATE [Concomitant]
     Active Substance: ALBUTEROL SULFATE
     Indication: Product used for unknown indication
     Dosage: UNK
     Route: 065

REACTIONS (7)
  - Epistaxis [Recovering/Resolving]
  - International normalised ratio increased [Recovered/Resolved]
  - Drug interaction [Recovering/Resolving]
  - Photosensitivity reaction [Recovered/Resolved]
  - Potentiating drug interaction [Unknown]
  - Labelled drug-drug interaction medication error [Unknown]
  - Inhibitory drug interaction [Unknown]
